FAERS Safety Report 23193670 (Version 1)
Quarter: 2023Q4

REPORT INFORMATION
  Report Type: Spontaneous
  Country: IT (occurrence: IT)
  Receive Date: 20231116
  Receipt Date: 20231116
  Transmission Date: 20240110
  Serious: No
  Sender: FDA-Public Use
  Company Number: IT-SCALL-2022-IT-168432

PATIENT

DRUGS (1)
  1. AVODART [Suspect]
     Active Substance: DUTASTERIDE
     Dosage: SOFT, 0.5 MG {LOT # F89K}
     Route: 065

REACTIONS (2)
  - Accidental exposure to product packaging [Unknown]
  - Product complaint [Unknown]
